FAERS Safety Report 18043464 (Version 2)
Quarter: 2020Q3

REPORT INFORMATION
  Report Type: Spontaneous
  Country: US (occurrence: US)
  Receive Date: 20200720
  Receipt Date: 20200831
  Transmission Date: 20201103
  Serious: No
  Sender: FDA-Public Use
  Company Number: US-MYLANLABS-2020M1062870

PATIENT
  Sex: Female

DRUGS (1)
  1. ESTRADIOL VAGINAL CREAM USP [Suspect]
     Active Substance: ESTRADIOL
     Indication: PRODUCT USED FOR UNKNOWN INDICATION
     Dosage: UNK (SUPPOSED TO USE IT EVERY DAY FOR 14 DAYS THEN ONCE EVERY 4 DAYS)

REACTIONS (2)
  - Drug ineffective [Not Recovered/Not Resolved]
  - Feeling abnormal [Unknown]

NARRATIVE: CASE EVENT DATE: 2020
